FAERS Safety Report 6460819-2 (Version None)
Quarter: 2009Q4

REPORT INFORMATION
  Report Type: 
  Country: None (occurrence: None)
  Receive Date: 20091125
  Receipt Date: 20091125
  Transmission Date: 20100525
  Serious: Yes (Death)
  Sender: FDA-Public Use
  Company Number: None

PATIENT
  Sex: Female
  Weight: 76.4 kg

DRUGS (5)
  1. CYTOXAN [Suspect]
     Indication: OVARIAN CANCER
     Dosage: 50 MG DAILY PO
     Route: 048
     Dates: start: 20091024, end: 20091116
  2. AMIODARONE HCL [Concomitant]
  3. HYDROCHLOROTHIAZIDE [Concomitant]
  4. POTASSIUM CHLORIDE [Concomitant]
  5. ATENOLOL [Concomitant]

REACTIONS (3)
  - HYPERCALCAEMIA [None]
  - HYPONATRAEMIA [None]
  - MALIGNANT NEOPLASM PROGRESSION [None]
